FAERS Safety Report 9816553 (Version 1)
Quarter: 2014Q1

REPORT INFORMATION
  Report Type: Spontaneous
  Country: US (occurrence: US)
  Receive Date: 20140114
  Receipt Date: 20140114
  Transmission Date: 20141002
  Serious: Yes (Life-Threatening, Hospitalization)
  Sender: FDA-Public Use
  Company Number: US-BANPHARM-20142016

PATIENT
  Age: 21 Year
  Sex: Male

DRUGS (1)
  1. IBUPROFEN UNKNOWN PRODUCT [Suspect]
     Dosage: 18 GM, X1;
     Route: 048

REACTIONS (3)
  - Suicide attempt [Unknown]
  - Thrombocytopenic purpura [Unknown]
  - Anuria [Unknown]
